FAERS Safety Report 8008035-7 (Version None)
Quarter: 2011Q4

REPORT INFORMATION
  Report Type: 
  Country: None (occurrence: None)
  Receive Date: 20111227
  Receipt Date: 20111220
  Transmission Date: 20120403
  Serious: Yes (Other)
  Sender: FDA-Public Use
  Company Number: PHHY2011CA63583

PATIENT
  Sex: Female

DRUGS (1)
  1. GILENYA [Suspect]
     Indication: RELAPSING-REMITTING MULTIPLE SCLEROSIS
     Dosage: 0.5 MG, QD
     Route: 048
     Dates: start: 20110711

REACTIONS (14)
  - CENTRAL NERVOUS SYSTEM LESION [None]
  - BLOOD PRESSURE DECREASED [None]
  - NAUSEA [None]
  - EYE OEDEMA [None]
  - ABDOMINAL PAIN [None]
  - FATIGUE [None]
  - FLUSHING [None]
  - SOMNOLENCE [None]
  - OPTIC NEURITIS [None]
  - HEADACHE [None]
  - PERIPHERAL COLDNESS [None]
  - FEELING HOT [None]
  - FEELING COLD [None]
  - HEART RATE DECREASED [None]
